FAERS Safety Report 23847295 (Version 1)
Quarter: 2024Q2

REPORT INFORMATION
  Report Type: Report from Study
  Country: US (occurrence: US)
  Receive Date: 20240513
  Receipt Date: 20240513
  Transmission Date: 20240716
  Serious: Yes (Hospitalization, Other)
  Sender: FDA-Public Use
  Company Number: US-ABBVIE-5747665

PATIENT
  Age: 81 Year
  Sex: Female

DRUGS (1)
  1. RINVOQ [Suspect]
     Active Substance: UPADACITINIB
     Indication: Rheumatoid arthritis
     Dosage: FORM STRENGTH: 15 MILLIGRAM
     Route: 048
     Dates: start: 2014

REACTIONS (8)
  - Hypertension [Unknown]
  - Rheumatoid arthritis [Recovered/Resolved]
  - Pneumonia [Unknown]
  - Weight decreased [Unknown]
  - Muscle spasms [Unknown]
  - Diabetes mellitus [Unknown]
  - Hand deformity [Unknown]
  - Illness [Recovered/Resolved]

NARRATIVE: CASE EVENT DATE: 20230801
